FAERS Safety Report 4982213-3 (Version None)
Quarter: 2006Q2

REPORT INFORMATION
  Report Type: 
  Country: None (occurrence: None)
  Receive Date: 20060419
  Receipt Date: 20060327
  Transmission Date: 20061013
  Serious: Yes (Hospitalization)
  Sender: FDA-Public Use
  Company Number: US200603006677

PATIENT
  Age: 63 Year
  Sex: Female

DRUGS (2)
  1. HUMALOG PEN [Suspect]
     Indication: DIABETES MELLITUS
     Dosage: 13 I
     Dates: start: 20030101
  2. LANTUS [Concomitant]

REACTIONS (1)
  - KIDNEY INFECTION [None]
